FAERS Safety Report 11146833 (Version 1)
Quarter: 2015Q2

REPORT INFORMATION
  Report Type: Report from Study
  Country: US (occurrence: US)
  Receive Date: 20150528
  Receipt Date: 20150528
  Transmission Date: 20150821
  Serious: Yes (Other)
  Sender: FDA-Public Use
  Company Number: US-GILEAD-2015-0154767

PATIENT
  Age: 50 Year
  Sex: Female

DRUGS (1)
  1. LEDIPASVIR/SOFOSBUVIR [Suspect]
     Active Substance: LEDIPASVIR\SOFOSBUVIR
     Indication: CHRONIC HEPATITIS C
     Dosage: 1 DF, UNK
     Route: 048
     Dates: start: 20150413

REACTIONS (6)
  - Insomnia [Unknown]
  - Headache [Unknown]
  - Nervousness [Unknown]
  - Rash papular [Unknown]
  - Feeling jittery [Unknown]
  - Hypertension [Unknown]
